FAERS Safety Report 6376352-2 (Version None)
Quarter: 2009Q3

REPORT INFORMATION
  Report Type: 
  Country: None (occurrence: None)
  Receive Date: 20090922
  Receipt Date: 20090922
  Transmission Date: 20100115
  Serious: Yes (Death, Other)
  Sender: FDA-Public Use
  Company Number: None

PATIENT
  Age: 48 Year
  Sex: Female
  Weight: 74.8435 kg

DRUGS (3)
  1. CYMBALTA [Suspect]
     Indication: DEPRESSION
     Dosage: PO
     Route: 048
     Dates: start: 20071105, end: 20071201
  2. EFFEXOR XR [Suspect]
     Dosage: PO
     Dates: start: 20071201, end: 20071210
  3. XANAX [Suspect]
     Dosage: PO
     Route: 048
     Dates: start: 20071201, end: 20071210

REACTIONS (5)
  - AGGRESSION [None]
  - ASPHYXIA [None]
  - COMPLETED SUICIDE [None]
  - DEPRESSION [None]
  - DISEASE COMPLICATION [None]
